FAERS Safety Report 4299677-3 (Version None)
Quarter: 2004Q1

REPORT INFORMATION
  Report Type: 
  Country: None (occurrence: None)
  Receive Date: 20040218
  Receipt Date: 20040218
  Transmission Date: 20041129
  Serious: Yes (Other)
  Sender: FDA-Public Use
  Company Number: None

PATIENT
  Age: 30 Year
  Sex: Female

DRUGS (2)
  1. PAXIL CR [Suspect]
     Indication: ANXIETY
     Dosage: PO DAILY
     Route: 048
     Dates: start: 20020902
  2. PAROXETINE HCL [Suspect]
     Indication: URTICARIA
     Dosage: PO DAILY
     Route: 048
     Dates: start: 20021013

REACTIONS (2)
  - DYSPNOEA [None]
  - PALPITATIONS [None]
